FAERS Safety Report 11937602 (Version 3)
Quarter: 2016Q1

REPORT INFORMATION
  Report Type: Spontaneous
  Country: FR (occurrence: FR)
  Receive Date: 20160122
  Receipt Date: 20160217
  Transmission Date: 20160526
  Serious: Yes (Other)
  Sender: FDA-Public Use
  Company Number: FR-009507513-1601FRA007075

PATIENT
  Age: 45 Year
  Sex: Male

DRUGS (5)
  1. FARYDAK [Interacting]
     Active Substance: PANOBINOSTAT
     Dosage: 20 MG+ 20MG
     Route: 048
     Dates: start: 20160109, end: 201601
  2. FARYDAK [Interacting]
     Active Substance: PANOBINOSTAT
     Indication: PLASMA CELL MYELOMA
     Dosage: 20 MG PER CYCLE (CYCLE OF 21 DAYS, AT DAY-1, 3, 5, 8, 10 AND 12 OF THE CYCLE ); DURATION: 2 INTAKES
     Route: 048
     Dates: start: 20151211, end: 20151213
  3. FARYDAK [Interacting]
     Active Substance: PANOBINOSTAT
     Dosage: 10 MG, PER INTAKE
     Route: 048
     Dates: start: 20160116, end: 201601
  4. FARYDAK [Interacting]
     Active Substance: PANOBINOSTAT
     Dosage: 10 MG, CYCLICAL
     Route: 048
     Dates: start: 20160126, end: 2016
  5. NOXAFIL [Suspect]
     Active Substance: POSACONAZOLE
     Dosage: 300 MG/DAY (100 MG * 3 /DAY IN A SINGLE DOSE)
     Route: 048
     Dates: start: 201509, end: 20160104

REACTIONS (2)
  - Electrocardiogram QT prolonged [Recovered/Resolved]
  - Sinus bradycardia [Recovered/Resolved]

NARRATIVE: CASE EVENT DATE: 20151214
